FAERS Safety Report 11330904 (Version 1)
Quarter: 2015Q3

REPORT INFORMATION
  Report Type: Report from Study
  Country: CA (occurrence: CA)
  Receive Date: 20150803
  Receipt Date: 20150803
  Transmission Date: 20151125
  Serious: Yes (Other)
  Sender: FDA-Public Use
  Company Number: CA-ROCHE-1226044

PATIENT
  Sex: Male
  Weight: 67 kg

DRUGS (11)
  1. METHYLPREDNISOLONE. [Concomitant]
     Active Substance: METHYLPREDNISOLONE
     Indication: PREMEDICATION
     Route: 042
     Dates: start: 20110811
  2. ACETAMINOPHEN. [Concomitant]
     Active Substance: ACETAMINOPHEN
     Indication: PREMEDICATION
     Route: 048
     Dates: start: 20110811
  3. PREDNISONE. [Concomitant]
     Active Substance: PREDNISONE
  4. FOLIC ACID. [Concomitant]
     Active Substance: FOLIC ACID
  5. DIPHENHYDRAMINE HCL [Concomitant]
     Active Substance: DIPHENHYDRAMINE HYDROCHLORIDE
     Indication: PREMEDICATION
     Route: 048
     Dates: start: 20110811
  6. RITUXAN [Suspect]
     Active Substance: RITUXIMAB
     Indication: RHEUMATOID ARTHRITIS
     Dosage: PREVIOUS DOSE: 25/AUG/2011
     Route: 042
     Dates: start: 20110811
  7. METHOTREXATE [Concomitant]
     Active Substance: METHOTREXATE
  8. CITALOPRAM [Concomitant]
     Active Substance: CITALOPRAM HYDROBROMIDE
  9. PANTOLOC [Concomitant]
     Active Substance: PANTOPRAZOLE SODIUM
  10. TYLENOL WITH CODEINE [Concomitant]
     Active Substance: ACETAMINOPHEN\CODEINE PHOSPHATE
  11. ZOMIG [Concomitant]
     Active Substance: ZOLMITRIPTAN

REACTIONS (2)
  - Rheumatoid arthritis [Not Recovered/Not Resolved]
  - Depression [Not Recovered/Not Resolved]
